FAERS Safety Report 4481931-3 (Version None)
Quarter: 2004Q4

REPORT INFORMATION
  Report Type: 
  Country: None (occurrence: None)
  Receive Date: 20041020
  Receipt Date: 20040930
  Transmission Date: 20050328
  Serious: Yes (Death, Hospitalization)
  Sender: FDA-Public Use
  Company Number: GBS041015690

PATIENT
  Sex: Female

DRUGS (1)
  1. ZYPREXA [Suspect]

REACTIONS (4)
  - CONDITION AGGRAVATED [None]
  - MENTAL DISORDER [None]
  - PULMONARY EMBOLISM [None]
  - WEIGHT INCREASED [None]
